FAERS Safety Report 25373536 (Version 1)
Quarter: 2025Q2

REPORT INFORMATION
  Report Type: Spontaneous
  Country: KW (occurrence: KW)
  Receive Date: 20250529
  Receipt Date: 20250529
  Transmission Date: 20250716
  Serious: Yes (Death)
  Sender: ULTRAGENYX PHARMACEUTICAL
  Company Number: KW-ULTRAGENYX PHARMACEUTICAL INC.-KW-UGX-25-00759

PATIENT
  Age: 0 Year
  Sex: Female
  Weight: 1.39 kg

DRUGS (6)
  1. DOJOLVI [Suspect]
     Active Substance: TRIHEPTANOIN
     Indication: Mitochondrial enzyme deficiency
     Dosage: 0.1 MILLILITER, Q12H
     Route: 002
     Dates: start: 20250410, end: 20250412
  2. MILRINEON [Concomitant]
     Indication: Cardiac disorder
  3. LASIX [Concomitant]
     Active Substance: FUROSEMIDE
     Indication: Cardiac dysfunction
  4. DEXTROSE [Concomitant]
     Active Substance: DEXTROSE MONOHYDRATE
     Indication: Hypoglycaemia
     Route: 042
  5. SODIUM BICARBONATE [Concomitant]
     Active Substance: SODIUM BICARBONATE
     Indication: Metabolic acidosis
  6. ALDACTONE [Concomitant]
     Active Substance: SPIRONOLACTONE
     Indication: Cardiac disorder

REACTIONS (3)
  - Respiratory failure [Fatal]
  - Sepsis [Fatal]
  - Off label use [Not Recovered/Not Resolved]

NARRATIVE: CASE EVENT DATE: 20250410
